FAERS Safety Report 20537057 (Version 1)
Quarter: 2022Q1

REPORT INFORMATION
  Report Type: Spontaneous
  Country: US (occurrence: None)
  Receive Date: 20220301
  Receipt Date: 20220301
  Transmission Date: 20220423
  Serious: No
  Sender: FDA-Public Use
  Company Number: None

PATIENT
  Age: 70 Year
  Sex: Female

DRUGS (1)
  1. CAPECITABINE [Suspect]
     Active Substance: CAPECITABINE
     Dosage: 1500MG BID ORAL
     Route: 048
     Dates: end: 202202

REACTIONS (7)
  - Pain [None]
  - Neuropathy peripheral [None]
  - Back pain [None]
  - Pain in extremity [None]
  - Decreased activity [None]
  - Paraesthesia [None]
  - Therapy interrupted [None]

NARRATIVE: CASE EVENT DATE: 20220214
